FAERS Safety Report 7206245-X (Version None)
Quarter: 2011Q1

REPORT INFORMATION
  Report Type: 
  Country: None (occurrence: None)
  Receive Date: 20110103
  Receipt Date: 20101221
  Transmission Date: 20110831
  Serious: Yes (Other)
  Sender: FDA-Public Use
  Company Number: US-ELI_LILLY_AND_COMPANY-US201012005553

PATIENT
  Age: 74 Year
  Sex: Male

DRUGS (3)
  1. UROXATRAL [Concomitant]
  2. CIALIS [Suspect]
     Indication: ERECTILE DYSFUNCTION
     Dosage: 10 MG, AS NEEDED
  3. AVODART [Concomitant]

REACTIONS (3)
  - OROPHARYNGEAL PAIN [None]
  - BLADDER CANCER [None]
  - URETERECTOMY [None]
